FAERS Safety Report 4701033-8 (Version None)
Quarter: 2005Q2

REPORT INFORMATION
  Report Type: 
  Country: None (occurrence: None)
  Receive Date: 20050624
  Receipt Date: 20050302
  Transmission Date: 20051028
  Serious: No
  Sender: FDA-Public Use
  Company Number: P200500005

PATIENT
  Age: 73 Year
  Sex: Male
  Weight: 84.4 kg

DRUGS (18)
  1. PLENAXIS [Suspect]
     Indication: PROSTATE CANCER METASTATIC
     Dosage: 100 MG, SINGLE, INTRAMUSCULAR
     Route: 030
     Dates: start: 20041126, end: 20041126
  2. PLENAXIS [Suspect]
     Indication: PROSTATE CANCER METASTATIC
     Dosage: 100 MG, SINGLE, INTRAMUSCULAR
     Route: 030
     Dates: start: 20041210, end: 20041210
  3. PLENAXIS [Suspect]
     Indication: PROSTATE CANCER METASTATIC
     Dosage: 100 MG, SINGLE, INTRAMUSCULAR
     Route: 030
     Dates: start: 20041217, end: 20041217
  4. PLENAXIS [Suspect]
     Indication: PROSTATE CANCER METASTATIC
     Dosage: 100 MG, SINGLE, INTRAMUSCULAR
     Route: 030
     Dates: start: 20050128, end: 20050128
  5. PLENAXIS [Suspect]
     Indication: PROSTATE CANCER METASTATIC
     Dosage: 100 MG, SINGLE, INTRAMUSCULAR
     Route: 030
     Dates: start: 20050225, end: 20050225
  6. PLENAXIS [Suspect]
     Indication: PROSTATE CANCER METASTATIC
     Dosage: 100 MG, SINGLE, INTRAMUSCULAR
     Route: 030
     Dates: start: 20050325, end: 20050325
  7. VITAMINS [Concomitant]
  8. THERALOGICS [Concomitant]
  9. ZINC (ZINC) [Concomitant]
  10. SAW PALMETTO (SERENOA REPENS) [Concomitant]
  11. MULTIVITAMINS (THIAMINE HYDROCHLORIDE, NICOTINAMIDE, ASCORBIC ACID, ER [Concomitant]
  12. VITAMIN B COMPLEX CAP [Concomitant]
  13. BETACAROTENE (BETACAROTENE) [Concomitant]
  14. VITAMIN C (ASCORBIC ACID) [Concomitant]
  15. VITAMIN E [Concomitant]
  16. BREWER'S YEAST (YEAST DRIED) [Concomitant]
  17. BILBERRY (VACCINIUM MYRTILLUS) [Concomitant]
  18. LUTEIN (XANTOFYL) [Concomitant]

REACTIONS (9)
  - ARTHRITIS [None]
  - BACK PAIN [None]
  - DYSPNOEA [None]
  - GYNAECOMASTIA [None]
  - HOT FLUSH [None]
  - HYPOAESTHESIA [None]
  - PANIC ATTACK [None]
  - URTICARIA LOCALISED [None]
  - WEIGHT INCREASED [None]
